FAERS Safety Report 24932925 (Version 1)
Quarter: 2025Q1

REPORT INFORMATION
  Report Type: Spontaneous
  Country: CA (occurrence: CA)
  Receive Date: 20250205
  Receipt Date: 20250205
  Transmission Date: 20250409
  Serious: Yes (Other)
  Sender: AUROBINDO
  Company Number: CA-AUROBINDO-AUR-APL-2025-005627

PATIENT
  Age: 65 Year
  Sex: Male

DRUGS (1)
  1. CEFIXIME [Suspect]
     Active Substance: CEFIXIME
     Indication: Infection
     Dosage: 400 MILLIGRAM, ONCE A DAY (1 EVERY 1 DAYS)
     Route: 048

REACTIONS (1)
  - Vomiting [Recovered/Resolved]
